FAERS Safety Report 4741618-6 (Version None)
Quarter: 2005Q3

REPORT INFORMATION
  Report Type: 
  Country: None (occurrence: None)
  Receive Date: 20050808
  Receipt Date: 20050722
  Transmission Date: 20060218
  Serious: Yes (Disabling)
  Sender: FDA-Public Use
  Company Number: JP_050707153

PATIENT
  Age: 75 Year
  Sex: Female

DRUGS (1)
  1. GEMZAR [Suspect]
     Indication: PANCREATIC CARCINOMA
     Dates: start: 20050601, end: 20050601

REACTIONS (6)
  - ABDOMINAL PAIN LOWER [None]
  - BLOOD PRESSURE DECREASED [None]
  - C-REACTIVE PROTEIN INCREASED [None]
  - HEPATIC NEOPLASM MALIGNANT [None]
  - MALIGNANT ASCITES [None]
  - ORAL INTAKE REDUCED [None]
